FAERS Safety Report 8069407-8 (Version None)
Quarter: 2012Q1

REPORT INFORMATION
  Report Type: 
  Country: None (occurrence: None)
  Receive Date: 20120119
  Receipt Date: 20120104
  Transmission Date: 20120608
  Serious: Yes (Hospitalization, Other)
  Sender: FDA-Public Use
  Company Number: JPI-P-018764

PATIENT
  Age: 35 Year
  Sex: Female
  Weight: 63.9572 kg

DRUGS (15)
  1. MONTELUKAST SODIUM [Concomitant]
  2. LEVOTHYROXINE SODIUM [Concomitant]
  3. ALBUTEROL SULFATE [Concomitant]
  4. PANTOPRAZOLE SODIUM [Concomitant]
  5. ARMODAFINIL [Concomitant]
  6. ARIPIPRAZOLE [Concomitant]
  7. XYREM [Suspect]
     Indication: CATAPLEXY
     Dosage: SEE IMAGE
     Route: 048
     Dates: start: 20120101
  8. XYREM [Suspect]
     Indication: SOMNOLENCE
     Dosage: SEE IMAGE
     Route: 048
     Dates: start: 20120101
  9. XYREM [Suspect]
     Indication: CATAPLEXY
     Dosage: SEE IMAGE
     Route: 048
     Dates: start: 20110101, end: 20110101
  10. XYREM [Suspect]
     Indication: SOMNOLENCE
     Dosage: SEE IMAGE
     Route: 048
     Dates: start: 20110101, end: 20110101
  11. XYREM [Suspect]
     Indication: CATAPLEXY
     Dosage: SEE IMAGE
     Route: 048
     Dates: start: 20110610, end: 20111209
  12. XYREM [Suspect]
     Indication: SOMNOLENCE
     Dosage: SEE IMAGE
     Route: 048
     Dates: start: 20110610, end: 20111209
  13. XYREM [Suspect]
     Indication: CATAPLEXY
     Dosage: SEE IMAGE
     Route: 048
     Dates: start: 20110412, end: 20110101
  14. XYREM [Suspect]
     Indication: SOMNOLENCE
     Dosage: SEE IMAGE
     Route: 048
     Dates: start: 20110412, end: 20110101
  15. MULTI-VITAMINS [Concomitant]

REACTIONS (22)
  - DYSPNOEA [None]
  - SLEEP TALKING [None]
  - NAUSEA [None]
  - SMALL INTESTINAL OBSTRUCTION [None]
  - WEIGHT DECREASED [None]
  - DYSSTASIA [None]
  - ASTHENIA [None]
  - URINARY TRACT INFECTION [None]
  - IMPAIRED HEALING [None]
  - SLEEP TERROR [None]
  - POOR QUALITY SLEEP [None]
  - PALPITATIONS [None]
  - MALAISE [None]
  - PAIN IN EXTREMITY [None]
  - VOMITING [None]
  - HYPOAESTHESIA [None]
  - MUSCULAR WEAKNESS [None]
  - DIZZINESS [None]
  - SKIN DISCOLOURATION [None]
  - GAIT DISTURBANCE [None]
  - LETHARGY [None]
  - INCISION SITE INFECTION [None]
